FAERS Safety Report 5025495-4 (Version None)
Quarter: 2006Q2

REPORT INFORMATION
  Report Type: 
  Country: None (occurrence: None)
  Receive Date: 20060608
  Receipt Date: 20060531
  Transmission Date: 20061013
  Serious: Yes (Other)
  Sender: FDA-Public Use
  Company Number: 225537

PATIENT
  Age: 41 Year
  Sex: Male

DRUGS (6)
  1. XOLAIR [Suspect]
     Indication: ASTHMA
     Dosage: 325 MG, Q2W
     Dates: start: 20060207, end: 20060517
  2. MEDROL DOSEPAK (METHYLPREDNISOLONE) [Concomitant]
  3. HYDROCHLOROTHIAZIDE [Concomitant]
  4. ADVAIR DISKUS 100/50 [Concomitant]
  5. ALLEGRA [Concomitant]
  6. NASACORT AQ (TRIAMCINOLONE ACETONIDE) [Concomitant]

REACTIONS (1)
  - CARDIOMYOPATHY [None]
